FAERS Safety Report 8430933-0 (Version None)
Quarter: 2012Q2

REPORT INFORMATION
  Report Type: 
  Country: None (occurrence: None)
  Receive Date: 20120612
  Receipt Date: 20120529
  Transmission Date: 20120825
  Serious: No
  Sender: FDA-Public Use
  Company Number: US-ASTRAZENECA-2012SE34637

PATIENT
  Sex: Male

DRUGS (4)
  1. CYCLOSPORINE [Concomitant]
  2. ULORIC [Concomitant]
  3. PALVIX [Concomitant]
  4. CRESTOR [Suspect]
     Route: 048

REACTIONS (4)
  - INTENTIONAL DRUG MISUSE [None]
  - FATIGUE [None]
  - BLOOD CREATININE INCREASED [None]
  - POLLAKIURIA [None]
